FAERS Safety Report 8783644 (Version 1)
Quarter: 2012Q4

REPORT INFORMATION
  Report Type: 
  Country: US (occurrence: US)
  Receive Date: 20120913
  Receipt Date: 20120913
  Transmission Date: 20130627
  Serious: No
  Sender: FDA-Public Use
  Company Number: US-VERTEX PHARMACEUTICAL INC.-AE-2012-009254

PATIENT

DRUGS (7)
  1. INCIVEK [Suspect]
     Indication: HEPATITIS C
     Route: 048
     Dates: start: 20120614
  2. PEGASYS [Concomitant]
     Indication: HEPATITIS C
     Route: 058
     Dates: start: 20120613
  3. RIBAVIRIN [Concomitant]
     Indication: HEPATITIS C
     Route: 048
     Dates: start: 20120614
  4. CELEXA [Concomitant]
     Indication: BIPOLAR DISORDER
     Route: 048
  5. RISPERIDAL [Concomitant]
     Indication: BIPOLAR DISORDER
     Route: 048
  6. TRILEPTAL [Concomitant]
     Indication: BIPOLAR DISORDER
     Route: 048
  7. VISTERIL [Concomitant]
     Route: 048

REACTIONS (3)
  - Drug dose omission [Recovered/Resolved]
  - Faeces discoloured [Not Recovered/Not Resolved]
  - Pyrexia [Recovered/Resolved]
